FAERS Safety Report 9451251 (Version 1)
Quarter: 2013Q3

REPORT INFORMATION
  Report Type: Spontaneous
  Country: US (occurrence: US)
  Receive Date: 20130809
  Receipt Date: 20130809
  Transmission Date: 20140515
  Serious: Yes (Other)
  Sender: FDA-Public Use
  Company Number: US-TEVA-424544USA

PATIENT
  Age: 32 Year
  Sex: Female

DRUGS (1)
  1. PACLITAXEL [Suspect]
     Indication: BREAST CANCER METASTATIC
     Dosage: WEEKLY TREATMENTS FOR 3 WEEKS WITH A FOURTH WEEK HOLIDAY (DOSAGE NOT STATED)
     Route: 065

REACTIONS (1)
  - Cystoid macular oedema [Recovered/Resolved]
